FAERS Safety Report 4835609-4 (Version None)
Quarter: 2005Q4

REPORT INFORMATION
  Report Type: 
  Country: None (occurrence: None)
  Receive Date: 20051121
  Receipt Date: 20051107
  Transmission Date: 20060501
  Serious: Yes (Other)
  Sender: FDA-Public Use
  Company Number: 2005155192

PATIENT
  Sex: Male

DRUGS (3)
  1. NEURONTIN [Suspect]
     Indication: HYPOAESTHESIA
     Dosage: 300 MG
  2. PREDNISONE [Suspect]
     Indication: COLITIS ULCERATIVE
     Dosage: 10 MG
     Dates: end: 20010901
  3. PRINIVIL [Suspect]
     Indication: BLOOD PRESSURE

REACTIONS (7)
  - BLOOD PRESSURE ABNORMAL [None]
  - DEHYDRATION [None]
  - DRUG INEFFECTIVE [None]
  - GASTROINTESTINAL STOMA COMPLICATION [None]
  - HAEMORRHAGE [None]
  - HYPOAESTHESIA [None]
  - RENAL DISORDER [None]
